FAERS Safety Report 9238346 (Version 1)
Quarter: 2013Q1

REPORT INFORMATION
  Report Type: Spontaneous
  Country: US (occurrence: None)
  Receive Date: 20121106
  Receipt Date: 20121106
  Transmission Date: 20140127
  Serious: No
  Sender: FDA-Public Use
  Company Number: 1000037391

PATIENT
  Age: 54 Year
  Sex: Female

DRUGS (3)
  1. DALIRESP [Suspect]
     Indication: BRONCHITIS CHRONIC
  2. ALVESCO [Concomitant]
  3. SYNTHROID [Concomitant]

REACTIONS (2)
  - Feeling abnormal [None]
  - Memory impairment [None]
